FAERS Safety Report 13366927 (Version 4)
Quarter: 2017Q2

REPORT INFORMATION
  Report Type: Spontaneous
  Country: JP (occurrence: JP)
  Receive Date: 20170324
  Receipt Date: 20170428
  Transmission Date: 20170830
  Serious: Yes (Hospitalization, Other)
  Sender: FDA-Public Use
  Company Number: JP-GILEAD-2017-0263457

PATIENT
  Sex: Female

DRUGS (8)
  1. REBETOL [Suspect]
     Active Substance: RIBAVIRIN
     Indication: CHRONIC HEPATITIS C
     Dosage: UNK
     Route: 048
     Dates: start: 20160128, end: 20160422
  2. PORTOLAC [Concomitant]
     Active Substance: LACTITOL
  3. TAKEPRON [Concomitant]
     Active Substance: LANSOPRAZOLE
  4. LASIX [Concomitant]
     Active Substance: FUROSEMIDE
  5. LAXOBERON [Concomitant]
     Active Substance: SODIUM PICOSULFATE
  6. HALCION [Concomitant]
     Active Substance: TRIAZOLAM
  7. SOVALDI [Suspect]
     Active Substance: SOFOSBUVIR
     Indication: CHRONIC HEPATITIS C
     Dosage: 400 MG, UNK
     Route: 048
     Dates: start: 20160128, end: 20160422
  8. NOVORAPID [Concomitant]
     Active Substance: INSULIN ASPART

REACTIONS (3)
  - Hepatocellular carcinoma [Recovered/Resolved]
  - Hepatitis C [Unknown]
  - Drug ineffective [Unknown]

NARRATIVE: CASE EVENT DATE: 20160621
